FAERS Safety Report 14214875 (Version 2)
Quarter: 2021Q4

REPORT INFORMATION
  Report Type: Spontaneous
  Country: US (occurrence: None)
  Receive Date: 20171122
  Receipt Date: 20211129
  Transmission Date: 20220303
  Serious: No
  Sender: FDA-Public Use
  Company Number: US-ROCHE-1968362

PATIENT
  Sex: Female

DRUGS (6)
  1. HERCEPTIN [Suspect]
     Active Substance: TRASTUZUMAB
     Indication: HER2 positive breast cancer
     Route: 042
     Dates: start: 201510
  2. HERCEPTIN [Suspect]
     Active Substance: TRASTUZUMAB
     Indication: Breast cancer metastatic
     Route: 042
     Dates: start: 201701
  3. PERJETA [Suspect]
     Active Substance: PERTUZUMAB
     Indication: HER2 positive breast cancer
     Dosage: 6 ROUNDS
     Route: 042
  4. PERJETA [Suspect]
     Active Substance: PERTUZUMAB
     Indication: Breast cancer stage IV
  5. BENADRYL [Concomitant]
     Active Substance: DIPHENHYDRAMINE HYDROCHLORIDE
     Dosage: BEFORE TRATUZUMAB TREATMENT GIVEN OVER 20 MINUTES
     Route: 042
  6. TYLENOL [Concomitant]
     Active Substance: ACETAMINOPHEN
     Dosage: 2 PILLS BEFORE TRASTUZUMAB TREATMENT
     Route: 048

REACTIONS (7)
  - Diarrhoea [Recovering/Resolving]
  - Abdominal pain upper [Recovered/Resolved]
  - Rash [Unknown]
  - Influenza [Unknown]
  - Depression [Unknown]
  - Urine odour abnormal [Unknown]
  - Malaise [Unknown]

NARRATIVE: CASE EVENT DATE: 20170101
